FAERS Safety Report 6266066-1 (Version None)
Quarter: 2009Q3

REPORT INFORMATION
  Report Type: 
  Country: None (occurrence: None)
  Receive Date: 20090709
  Receipt Date: 20090630
  Transmission Date: 20100115
  Serious: Yes (Hospitalization)
  Sender: FDA-Public Use
  Company Number: 2009SP014506

PATIENT
  Age: 14 Year
  Sex: Female
  Weight: 54 kg

DRUGS (1)
  1. CLARITIN-D [Suspect]
     Indication: INFLUENZA
     Dosage: 7.5 ML;QD; PO
     Route: 048
     Dates: start: 20090610, end: 20090614

REACTIONS (1)
  - CONVULSION [None]
